FAERS Safety Report 10920854 (Version 1)
Quarter: 2015Q1

REPORT INFORMATION
  Report Type: Spontaneous
  Country: US (occurrence: US)
  Receive Date: 20150317
  Receipt Date: 20150317
  Transmission Date: 20150721
  Serious: No
  Sender: FDA-Public Use
  Company Number: US-PFIZER INC-2015090382

PATIENT
  Sex: Female

DRUGS (1)
  1. DEPO-MEDROL [Suspect]
     Active Substance: METHYLPREDNISOLONE ACETATE

REACTIONS (4)
  - Vaginal haemorrhage [Unknown]
  - Abdominal distension [Unknown]
  - Weight increased [Unknown]
  - Blood urine present [Unknown]
